FAERS Safety Report 24232807 (Version 1)
Quarter: 2024Q3

REPORT INFORMATION
  Report Type: Report from Study
  Country: US (occurrence: US)
  Receive Date: 20240821
  Receipt Date: 20240821
  Transmission Date: 20241016
  Serious: Yes (Other)
  Sender: ROCHE
  Company Number: US-ROCHE-10000057959

PATIENT
  Age: 89 Year
  Sex: Female

DRUGS (1)
  1. ROZLYTREK [Suspect]
     Active Substance: ENTRECTINIB
     Indication: Lung neoplasm malignant
     Dosage: TAKE 1 CAPSULE (200 MG TOTAL) BY MOUTH DAILY. START AT ONE CAPSULE EVERY OTHER DAY, INCREASE AS TOLE
     Route: 048

REACTIONS (2)
  - Hypoacusis [Unknown]
  - Deafness [Unknown]
